FAERS Safety Report 6021467-1 (Version None)
Quarter: 2008Q4

REPORT INFORMATION
  Report Type: 
  Country: None (occurrence: None)
  Receive Date: 20081229
  Receipt Date: 20081219
  Transmission Date: 20090506
  Serious: No
  Sender: FDA-Public Use
  Company Number: US-JNJFOC-20081205896

PATIENT
  Sex: Male
  Weight: 79.38 kg

DRUGS (7)
  1. DURAGESIC-100 [Suspect]
     Indication: BACK PAIN
     Route: 062
  2. NEURONTIN [Concomitant]
     Indication: NEURALGIA
     Dosage: 1 IN AM AND 2 AT BED TIME
     Route: 048
  3. LORTAB [Concomitant]
     Indication: PAIN
     Dosage: 7.5-500MG, 1 EVERY 6 HOURS AS NEEDED
     Route: 048
  4. ALTACE [Concomitant]
     Indication: CARDIAC DISORDER
     Route: 048
  5. COUMADIN [Concomitant]
     Indication: CARDIAC DISORDER
     Route: 048
  6. VYTORIN [Concomitant]
     Indication: BLOOD CHOLESTEROL
     Dosage: 10-40 MG
     Route: 048
  7. DOXIDAN [Concomitant]
     Indication: GASTROINTESTINAL DISORDER
     Dosage: AT BEDTIME
     Route: 048

REACTIONS (2)
  - INCORRECT DRUG ADMINISTRATION DURATION [None]
  - WRONG TECHNIQUE IN DRUG USAGE PROCESS [None]
